FAERS Safety Report 4682420-3 (Version None)
Quarter: 2005Q2

REPORT INFORMATION
  Report Type: 
  Country: None (occurrence: None)
  Receive Date: 20050602
  Receipt Date: 20050502
  Transmission Date: 20051028
  Serious: Yes (Hospitalization)
  Sender: FDA-Public Use
  Company Number: USA050495161

PATIENT
  Sex: Male

DRUGS (17)
  1. CYMBALTA [Suspect]
     Indication: NEURALGIA
     Dosage: 30 MG/2 DAY
     Dates: start: 20041107, end: 20041110
  2. PRILOSEC (OMEPRAZOLE RATIOPHARM) [Concomitant]
  3. TOPROL-XL [Concomitant]
  4. LIPITOR [Concomitant]
  5. ASPIRIN [Concomitant]
  6. PLAVIX [Concomitant]
  7. WELLBUTRIN [Concomitant]
  8. ATIVAN [Concomitant]
  9. LANOXIN (DIGOXIN -SANDOZ) [Concomitant]
  10. COUMADIN [Concomitant]
  11. AMBIEN [Concomitant]
  12. HUMIBID (GUAIFENESIN L.A.) [Concomitant]
  13. RYTHMOL [Concomitant]
  14. LISINOPRIL [Concomitant]
  15. SINEMET [Concomitant]
  16. DYAZIDE [Concomitant]
  17. ENULOSE [Concomitant]

REACTIONS (14)
  - BODY TEMPERATURE DECREASED [None]
  - CONSTIPATION [None]
  - DEHYDRATION [None]
  - DIZZINESS [None]
  - DRUG INEFFECTIVE [None]
  - FEELING ABNORMAL [None]
  - HEADACHE [None]
  - HYPERHIDROSIS [None]
  - PENIS DISORDER [None]
  - SLEEP DISORDER [None]
  - SUICIDAL IDEATION [None]
  - THYROID DISORDER [None]
  - WEIGHT DECREASED [None]
  - WEIGHT INCREASED [None]
